FAERS Safety Report 8988765 (Version 5)
Quarter: 2013Q2

REPORT INFORMATION
  Report Type: Spontaneous
  Country: JP (occurrence: JP)
  Receive Date: 20121228
  Receipt Date: 20130604
  Transmission Date: 20140414
  Serious: Yes (Death)
  Sender: FDA-Public Use
  Company Number: JP-BRISTOL-MYERS SQUIBB COMPANY-17228859

PATIENT
  Age: 82 Year
  Sex: Male
  Weight: 40 kg

DRUGS (10)
  1. ORENCIA FOR INJ 250 MG/VIAL [Suspect]
     Indication: RHEUMATOID ARTHRITIS
     Route: 042
     Dates: start: 20121010, end: 20121121
  2. RHEUMATREX [Suspect]
     Indication: RHEUMATOID ARTHRITIS
     Dosage: CAPSULE
     Route: 048
     Dates: end: 20121218
  3. PROGRAF [Suspect]
     Route: 048
  4. PARIET [Concomitant]
     Indication: PROPHYLAXIS
     Dosage: TAB
     Route: 048
  5. ACTONEL [Concomitant]
     Route: 048
  6. ISCOTIN [Concomitant]
     Indication: PROPHYLAXIS
     Route: 048
     Dates: start: 20121010
  7. PRADAXA [Concomitant]
     Dosage: CAPS
     Route: 048
     Dates: start: 20100606
  8. CELECOXIB [Concomitant]
     Indication: RHEUMATOID ARTHRITIS
     Dosage: TABS
     Route: 048
  9. ARICEPT [Concomitant]
     Dosage: TABS
     Route: 048
     Dates: start: 200910
  10. ZOLOFT [Concomitant]
     Indication: RHEUMATOID ARTHRITIS
     Route: 048

REACTIONS (1)
  - Interstitial lung disease [Fatal]
